FAERS Safety Report 5302226-1 (Version None)
Quarter: 2007Q2

REPORT INFORMATION
  Report Type: 
  Country: None (occurrence: None)
  Receive Date: 20070419
  Receipt Date: 20060315
  Transmission Date: 20071010
  Serious: No
  Sender: FDA-Public Use
  Company Number: US-GLAXOSMITHKLINE-A0598318A

PATIENT
  Age: 21 Year
  Sex: Female

DRUGS (1)
  1. LITHIUM CARBONATE [Suspect]
     Route: 048
     Dates: start: 20051201

REACTIONS (3)
  - NAUSEA [None]
  - NIGHTMARE [None]
  - TREMOR [None]
